FAERS Safety Report 9127410 (Version 1)
Quarter: 2013Q1

REPORT INFORMATION
  Report Type: Spontaneous
  Country: US (occurrence: US)
  Receive Date: 20130228
  Receipt Date: 20130228
  Transmission Date: 20140127
  Serious: No
  Sender: FDA-Public Use
  Company Number: US-GLAXOSMITHKLINE-A0974203A

PATIENT
  Age: 58 Year
  Sex: Male

DRUGS (5)
  1. LAMICTAL [Suspect]
     Indication: PRODUCT USED FOR UNKNOWN INDICATION
     Dosage: 2.5MG PER DAY
     Route: 048
     Dates: start: 2007
  2. ABILIFY [Concomitant]
  3. WELLBUTRIN XL [Concomitant]
     Dosage: 300MG IN THE MORNING
  4. BUSPAR [Concomitant]
     Dosage: 7.5U PER DAY
  5. KLONOPIN [Concomitant]
     Dosage: .75U AT NIGHT

REACTIONS (5)
  - Asthenia [Recovered/Resolved]
  - Somnolence [Unknown]
  - Sensation of heaviness [Unknown]
  - Sleep disorder [Unknown]
  - Balance disorder [Unknown]
